FAERS Safety Report 5362891-X (Version None)
Quarter: 2007Q2

REPORT INFORMATION
  Report Type: 
  Country: None (occurrence: None)
  Receive Date: 20070612
  Receipt Date: 20070531
  Transmission Date: 20071010
  Serious: Yes (Hospitalization)
  Sender: FDA-Public Use
  Company Number: B0474251A

PATIENT
  Age: 76 Year
  Sex: Male

DRUGS (5)
  1. DIGOXIN [Suspect]
  2. QUININE SULPHATE (FORMULATION UNKNOWN) (QUININE SULFATE) [Suspect]
  3. ASPIRIN [Concomitant]
  4. CANDESARTAN CILEXETIL [Concomitant]
  5. AMLODIPINE [Concomitant]

REACTIONS (7)
  - ATRIOVENTRICULAR BLOCK COMPLETE [None]
  - ELECTROCARDIOGRAM QT PROLONGED [None]
  - FALL [None]
  - SYNCOPE [None]
  - THERAPEUTIC AGENT TOXICITY [None]
  - TORSADE DE POINTES [None]
  - VENTRICULAR EXTRASYSTOLES [None]
